FAERS Safety Report 20100036 (Version 2)
Quarter: 2021Q4

REPORT INFORMATION
  Report Type: Other
  Country: JP (occurrence: JP)
  Receive Date: 20211123
  Receipt Date: 20211213
  Transmission Date: 20220304
  Serious: Yes (Death, Hospitalization)
  Sender: FDA-Public Use
  Company Number: JP-CHUGAI-2021027498

PATIENT
  Age: 64 Year
  Sex: Male
  Weight: 52 kg

DRUGS (9)
  1. POLIVY [Suspect]
     Active Substance: POLATUZUMAB VEDOTIN-PIIQ
     Indication: Diffuse large B-cell lymphoma
     Route: 041
     Dates: start: 20210720, end: 20210720
  2. POLIVY [Suspect]
     Active Substance: POLATUZUMAB VEDOTIN-PIIQ
     Route: 041
     Dates: start: 20210820, end: 20210820
  3. POLIVY [Suspect]
     Active Substance: POLATUZUMAB VEDOTIN-PIIQ
     Route: 041
     Dates: start: 20210913
  4. POLIVY [Suspect]
     Active Substance: POLATUZUMAB VEDOTIN-PIIQ
     Route: 041
     Dates: start: 20210721
  5. BENDAMUSTINE HYDROCHLORIDE [Suspect]
     Active Substance: BENDAMUSTINE HYDROCHLORIDE
     Indication: Diffuse large B-cell lymphoma
     Dosage: MOST RECENT DOSE ON 13/SEP/2021.
     Route: 041
     Dates: start: 20210720
  6. RITUXIMAB [Concomitant]
     Active Substance: RITUXIMAB
     Indication: Diffuse large B-cell lymphoma
     Route: 041
     Dates: start: 20210720, end: 20210913
  7. RITUXIMAB [Concomitant]
     Active Substance: RITUXIMAB
     Route: 041
  8. ACYCLOVIR [Concomitant]
     Active Substance: ACYCLOVIR
     Indication: Infection prophylaxis
     Dosage: UNK
     Route: 065
  9. BENDAMUSTINE HYDROCHLORIDE [Concomitant]
     Active Substance: BENDAMUSTINE HYDROCHLORIDE
     Indication: Diffuse large B-cell lymphoma
     Route: 041

REACTIONS (2)
  - Stomatitis [Not Recovered/Not Resolved]
  - Aspiration [Fatal]

NARRATIVE: CASE EVENT DATE: 20210920
